FAERS Safety Report 5461550-2 (Version None)
Quarter: 2007Q3

REPORT INFORMATION
  Report Type: 
  Country: None (occurrence: None)
  Receive Date: 20070920
  Receipt Date: 20061103
  Transmission Date: 20080115
  Serious: No
  Sender: FDA-Public Use
  Company Number: A0625963A

PATIENT
  Age: 73 Year
  Sex: Female

DRUGS (3)
  1. ABREVA [Suspect]
     Dates: start: 20061028, end: 20061102
  2. TENORMIN [Concomitant]
  3. ACTONEL [Concomitant]

REACTIONS (1)
  - DRUG INEFFECTIVE [None]
